FAERS Safety Report 7486517-4 (Version None)
Quarter: 2011Q2

REPORT INFORMATION
  Report Type: 
  Country: None (occurrence: None)
  Receive Date: 20110517
  Receipt Date: 20110504
  Transmission Date: 20111010
  Serious: Yes (Hospitalization)
  Sender: FDA-Public Use
  Company Number: KZ-UCBSA-032318

PATIENT
  Age: 12 Year
  Sex: Male

DRUGS (1)
  1. KEPPRA [Suspect]
     Indication: EPILEPSY
     Route: 048
     Dates: start: 20110429, end: 20110503

REACTIONS (5)
  - SOMNOLENCE [None]
  - MUSCLE SPASMS [None]
  - MENTAL RETARDATION [None]
  - IRRITABILITY [None]
  - DRUG INEFFECTIVE [None]
